FAERS Safety Report 14552558 (Version 1)
Quarter: 2018Q1

REPORT INFORMATION
  Report Type: Spontaneous
  Country: US (occurrence: US)
  Receive Date: 20180216
  Receipt Date: 20180216
  Transmission Date: 20180509
  Serious: Yes (Other)
  Sender: FDA-Public Use
  Company Number: None

PATIENT
  Age: 56 Year
  Sex: Female

DRUGS (22)
  1. BUTRANS [Concomitant]
     Active Substance: BUPRENORPHINE
  2. MULTIVITAMIN [Concomitant]
     Active Substance: VITAMINS
  3. SYMBICORT [Concomitant]
     Active Substance: BUDESONIDE\FORMOTEROL FUMARATE DIHYDRATE
  4. FORTEO [Suspect]
     Active Substance: TERIPARATIDE
     Indication: OSTEOPOROSIS
     Route: 058
     Dates: start: 20170130, end: 20180215
  5. K-DUR [Concomitant]
     Active Substance: POTASSIUM CHLORIDE
  6. LEUCOVORIN. [Concomitant]
     Active Substance: LEUCOVORIN
  7. LYRICA [Concomitant]
     Active Substance: PREGABALIN
  8. VITAMIN D3 [Concomitant]
     Active Substance: CHOLECALCIFEROL
  9. ZOFRAN [Concomitant]
     Active Substance: ONDANSETRON HYDROCHLORIDE
  10. DOCUSATE [Concomitant]
     Active Substance: DOCUSATE
  11. LASIX [Concomitant]
     Active Substance: FUROSEMIDE
  12. VENTOLIN HFA [Concomitant]
     Active Substance: ALBUTEROL SULFATE
  13. DEXILANT [Concomitant]
     Active Substance: DEXLANSOPRAZOLE
  14. MTX [Concomitant]
     Active Substance: METHOTREXATE SODIUM
  15. COUMADIN [Concomitant]
     Active Substance: WARFARIN SODIUM
  16. PERCOCET [Concomitant]
     Active Substance: ACETAMINOPHEN\OXYCODONE HYDROCHLORIDE
  17. PAXIL [Concomitant]
     Active Substance: PAROXETINE HYDROCHLORIDE
  18. OXYBUTYNIN ER [Concomitant]
     Active Substance: OXYBUTYNIN
  19. ARAVA [Concomitant]
     Active Substance: LEFLUNOMIDE
  20. SYNTHROID [Concomitant]
     Active Substance: LEVOTHYROXINE SODIUM
  21. METOLAZONE. [Concomitant]
     Active Substance: METOLAZONE
  22. ORENCIA [Concomitant]
     Active Substance: ABATACEPT

REACTIONS (3)
  - Rash [None]
  - Thrombosis [None]
  - Lower limb fracture [None]

NARRATIVE: CASE EVENT DATE: 20180215
